FAERS Safety Report 19233694 (Version 1)
Quarter: 2021Q2

REPORT INFORMATION
  Report Type: Spontaneous
  Country: CN (occurrence: CN)
  Receive Date: 20210507
  Receipt Date: 20210507
  Transmission Date: 20210717
  Serious: Yes (Other)
  Sender: FDA-Public Use
  Company Number: CN-GLAXOSMITHKLINE-CN2021APC096083

PATIENT
  Age: 49 Year
  Sex: Female
  Weight: 42 kg

DRUGS (3)
  1. SODIUM CHLORIDE. [Concomitant]
     Active Substance: SODIUM CHLORIDE
     Indication: VEHICLE SOLUTION USE
     Dosage: 3 ML
     Route: 055
     Dates: start: 20210317, end: 20210317
  2. SALBUTAMOL SULPHATE [Suspect]
     Active Substance: ALBUTEROL SULFATE
     Indication: BRONCHOSTENOSIS
     Dosage: 5 MG, BID
     Route: 055
     Dates: start: 20210317, end: 20210317
  3. BUDESONIDE. [Suspect]
     Active Substance: BUDESONIDE
     Indication: BRONCHOSTENOSIS
     Dosage: 4 ML, BID
     Route: 055
     Dates: start: 20210317, end: 20210317

REACTIONS (4)
  - Discomfort [Recovered/Resolved]
  - Hyperhidrosis [Recovered/Resolved]
  - Nausea [Recovered/Resolved]
  - Amaurosis [Recovered/Resolved]

NARRATIVE: CASE EVENT DATE: 20210317
